FAERS Safety Report 13495961 (Version 2)
Quarter: 2017Q2

REPORT INFORMATION
  Report Type: Spontaneous
  Country: US (occurrence: US)
  Receive Date: 20170428
  Receipt Date: 20170522
  Transmission Date: 20170830
  Serious: No
  Sender: FDA-Public Use
  Company Number: US-GLAXOSMITHKLINE-US2017061487

PATIENT
  Sex: Female
  Weight: 108.39 kg

DRUGS (1)
  1. VENTOLIN HFA [Suspect]
     Active Substance: ALBUTEROL SULFATE
     Indication: OXYGEN SATURATION DECREASED
     Dosage: 1 PUFF(S), UNK
     Route: 055
     Dates: start: 20170407

REACTIONS (2)
  - Wrong technique in product usage process [Unknown]
  - Device use error [Unknown]
